FAERS Safety Report 15566244 (Version 2)
Quarter: 2018Q4

REPORT INFORMATION
  Report Type: Spontaneous
  Country: US (occurrence: US)
  Receive Date: 20181030
  Receipt Date: 20181207
  Transmission Date: 20190205
  Serious: Yes (Other)
  Sender: FDA-Public Use
  Company Number: US-DSJP-DSU-2017-143663

PATIENT

DRUGS (1)
  1. BENICAR [Suspect]
     Active Substance: OLMESARTAN MEDOXOMIL
     Indication: HYPERTENSION
     Dosage: 20 MG, QD
     Route: 048
     Dates: end: 20051230

REACTIONS (3)
  - Gastrointestinal infection [Not Recovered/Not Resolved]
  - Diverticulum [Unknown]
  - Urticaria [Unknown]

NARRATIVE: CASE EVENT DATE: 20030205
